FAERS Safety Report 14114580 (Version 1)
Quarter: 2017Q4

REPORT INFORMATION
  Report Type: Spontaneous
  Country: GB (occurrence: GB)
  Receive Date: 20171023
  Receipt Date: 20171023
  Transmission Date: 20180321
  Serious: Yes (Other)
  Sender: FDA-Public Use
  Company Number: GB-ASTRAZENECA-2017SF05480

PATIENT
  Age: 70 Year
  Sex: Female

DRUGS (1)
  1. METFORMIN + DAPAGLIFLOZIN [Suspect]
     Active Substance: DAPAGLIFLOZIN PROPANEDIOL\METFORMIN HYDROCHLORIDE
     Dosage: 10
     Route: 048

REACTIONS (1)
  - Diabetic ketoacidosis [Unknown]
